FAERS Safety Report 7951385-0 (Version None)
Quarter: 2011Q4

REPORT INFORMATION
  Report Type: 
  Country: None (occurrence: None)
  Receive Date: 20111129
  Receipt Date: 20111116
  Transmission Date: 20120403
  Serious: Yes (Other)
  Sender: FDA-Public Use
  Company Number: B0764774A

PATIENT
  Age: 22 Year
  Sex: Male

DRUGS (1)
  1. ADVAIR DISKUS 100/50 [Suspect]
     Indication: ASTHMA
     Dosage: TWICE PER DAY / INHALED
     Route: 055
     Dates: start: 20060101

REACTIONS (2)
  - ADRENAL INSUFFICIENCY [None]
  - CUSHING'S SYNDROME [None]
